FAERS Safety Report 16200444 (Version 1)
Quarter: 2019Q2

REPORT INFORMATION
  Report Type: Spontaneous
  Country: GB (occurrence: GB)
  Receive Date: 20190416
  Receipt Date: 20190416
  Transmission Date: 20190711
  Serious: Yes (Death)
  Sender: FDA-Public Use
  Company Number: GB-ROCHE-2303899

PATIENT
  Age: 8 Decade
  Sex: Male

DRUGS (1)
  1. CAPECITABINE. [Suspect]
     Active Substance: CAPECITABINE
     Indication: PRODUCT USED FOR UNKNOWN INDICATION
     Route: 065
     Dates: start: 20170629, end: 201707

REACTIONS (10)
  - Feeding disorder [Fatal]
  - Nausea [Fatal]
  - Eye infection [Fatal]
  - Pain [Fatal]
  - Dyspnoea [Fatal]
  - General physical health deterioration [Fatal]
  - Pharyngeal ulceration [Fatal]
  - Gait disturbance [Fatal]
  - Coma [Fatal]
  - Diarrhoea [Fatal]
